FAERS Safety Report 11885717 (Version 2)
Quarter: 2016Q1

REPORT INFORMATION
  Report Type: Spontaneous
  Country: AR (occurrence: AR)
  Receive Date: 20160104
  Receipt Date: 20160202
  Transmission Date: 20160526
  Serious: Yes (Other)
  Sender: FDA-Public Use
  Company Number: AR-SA-2015SA218602

PATIENT
  Age: 23 Year
  Sex: Male

DRUGS (4)
  1. METHYLPREDNISOLONE. [Concomitant]
     Active Substance: METHYLPREDNISOLONE
  2. LEMTRADA [Suspect]
     Active Substance: ALEMTUZUMAB
     Indication: MULTIPLE SCLEROSIS
     Route: 042
     Dates: start: 20150810, end: 20150814
  3. ACYCLOVIR. [Concomitant]
     Active Substance: ACYCLOVIR
  4. DIMENHYDRINATE. [Concomitant]
     Active Substance: DIMENHYDRINATE
     Dosage: 01 AMPOULE PRIOR TO EVENRY INFUSION

REACTIONS (5)
  - Pain [Unknown]
  - Leukopenia [Recovering/Resolving]
  - Pruritus [Unknown]
  - Impetigo [Recovered/Resolved]
  - Skin disorder [Unknown]

NARRATIVE: CASE EVENT DATE: 2015
